FAERS Safety Report 4829360-4 (Version None)
Quarter: 2005Q4

REPORT INFORMATION
  Report Type: 
  Country: None (occurrence: None)
  Receive Date: 20051116
  Receipt Date: 20051104
  Transmission Date: 20060501
  Serious: Yes (Other)
  Sender: FDA-Public Use
  Company Number: PHBS2005DE16450

PATIENT
  Age: 34 Year
  Sex: Female

DRUGS (3)
  1. HYDROCHLOROTHIAZIDE [Suspect]
     Indication: HYPERTENSION
     Dosage: 12.5 MG, QD
  2. EBRANTIL [Suspect]
     Indication: HYPERTENSION
     Dosage: 60 MG, QD
  3. CANDESARTAN [Suspect]
     Indication: HYPERTENSION
     Dosage: 8 MG, QD

REACTIONS (4)
  - CAESAREAN SECTION [None]
  - CHORIOAMNIONITIS [None]
  - DRUG EXPOSURE DURING PREGNANCY [None]
  - PREMATURE RUPTURE OF MEMBRANES [None]
